FAERS Safety Report 16052382 (Version 5)
Quarter: 2019Q3

REPORT INFORMATION
  Report Type: Spontaneous
  Country: US (occurrence: US)
  Receive Date: 20190308
  Receipt Date: 20190909
  Transmission Date: 20191004
  Serious: Yes (Other)
  Sender: FDA-Public Use
  Company Number: US-ASTRAZENECA-2018SF33869

PATIENT
  Age: 60 Year
  Sex: Female

DRUGS (29)
  1. PREVACID [Suspect]
     Active Substance: LANSOPRAZOLE
     Indication: GASTROOESOPHAGEAL REFLUX DISEASE
     Route: 065
     Dates: start: 200402, end: 200501
  2. ATIVAN [Concomitant]
     Active Substance: LORAZEPAM
  3. NEXIUM 24HR [Suspect]
     Active Substance: ESOMEPRAZOLE MAGNESIUM
     Route: 048
  4. PRILOSEC [Suspect]
     Active Substance: OMEPRAZOLE MAGNESIUM
     Indication: GASTROOESOPHAGEAL REFLUX DISEASE
     Route: 048
     Dates: start: 20030101, end: 20061231
  5. ZYLOPRIM [Concomitant]
     Active Substance: ALLOPURINOL
  6. LASIX [Concomitant]
     Active Substance: FUROSEMIDE
  7. TOPROL XL [Concomitant]
     Active Substance: METOPROLOL SUCCINATE
  8. NEXIUM [Suspect]
     Active Substance: ESOMEPRAZOLE MAGNESIUM
     Indication: GASTROOESOPHAGEAL REFLUX DISEASE
     Route: 048
     Dates: start: 200301, end: 200401
  9. AROMASIN [Concomitant]
     Active Substance: EXEMESTANE
  10. DURAGESIC [Concomitant]
     Active Substance: FENTANYL
  11. COZAAR [Concomitant]
     Active Substance: LOSARTAN POTASSIUM
  12. NEXIUM [Suspect]
     Active Substance: ESOMEPRAZOLE MAGNESIUM
     Indication: GASTROOESOPHAGEAL REFLUX DISEASE
     Route: 048
     Dates: start: 20030101, end: 20061231
  13. PRILOSEC OTC [Suspect]
     Active Substance: OMEPRAZOLE MAGNESIUM
     Route: 048
  14. CRESTOR [Concomitant]
     Active Substance: ROSUVASTATIN CALCIUM
  15. PREVACID 24 HR [Suspect]
     Active Substance: LANSOPRAZOLE
     Route: 065
  16. ALBUTEROL. [Concomitant]
     Active Substance: ALBUTEROL
  17. NEURONTIN [Concomitant]
     Active Substance: GABAPENTIN
  18. CATAPRES [Concomitant]
     Active Substance: CLONIDINE HYDROCHLORIDE
  19. RESTORIL [Concomitant]
     Active Substance: TEMAZEPAM
  20. PRILOSEC [Suspect]
     Active Substance: OMEPRAZOLE MAGNESIUM
     Indication: GASTROOESOPHAGEAL REFLUX DISEASE
     Route: 048
     Dates: start: 200502, end: 200601
  21. PREVACID [Suspect]
     Active Substance: LANSOPRAZOLE
     Indication: GASTROOESOPHAGEAL REFLUX DISEASE
     Route: 065
     Dates: start: 20030101, end: 20061231
  22. SYMBICORT [Concomitant]
     Active Substance: BUDESONIDE\FORMOTEROL FUMARATE DIHYDRATE
  23. SENSIPAR [Concomitant]
     Active Substance: CINACALCET HYDROCHLORIDE
  24. GLIPIZIDE. [Concomitant]
     Active Substance: GLIPIZIDE
  25. PREVACID [Suspect]
     Active Substance: LANSOPRAZOLE
     Indication: GASTROOESOPHAGEAL REFLUX DISEASE
     Route: 065
  26. NORVASC [Concomitant]
     Active Substance: AMLODIPINE BESYLATE
  27. ECOTRIN [Concomitant]
     Active Substance: ASPIRIN
  28. RENVELA [Concomitant]
     Active Substance: SEVELAMER CARBONATE
  29. LACTULOSE. [Concomitant]
     Active Substance: LACTULOSE

REACTIONS (6)
  - End stage renal disease [Unknown]
  - Renal failure [Unknown]
  - Renal injury [Unknown]
  - Chronic kidney disease-mineral and bone disorder [Unknown]
  - Nephrogenic anaemia [Unknown]
  - Chronic kidney disease [Not Recovered/Not Resolved]

NARRATIVE: CASE EVENT DATE: 2008
